FAERS Safety Report 10871599 (Version 1)
Quarter: 2015Q1

REPORT INFORMATION
  Report Type: Spontaneous
  Country: US (occurrence: None)
  Receive Date: 20150223
  Receipt Date: 20150223
  Transmission Date: 20150721
  Serious: Yes (Life-Threatening, Disabling)
  Sender: FDA-Public Use
  Company Number: None

PATIENT
  Age: 49 Year
  Sex: Female

DRUGS (11)
  1. VIIBRYD [Concomitant]
     Active Substance: VILAZODONE HYDROCHLORIDE
  2. NORCO [Concomitant]
     Active Substance: ACETAMINOPHEN\HYDROCODONE BITARTRATE
  3. LAMICTAL [Concomitant]
     Active Substance: LAMOTRIGINE
  4. LIDOCAINE. [Suspect]
     Active Substance: LIDOCAINE
  5. SEROQUEL [Concomitant]
     Active Substance: QUETIAPINE FUMARATE
  6. RISPERIDONE. [Concomitant]
     Active Substance: RISPERIDONE
  7. VITAMIN D3 [Concomitant]
     Active Substance: CHOLECALCIFEROL
  8. EFFEXOR XR [Concomitant]
     Active Substance: VENLAFAXINE HYDROCHLORIDE
  9. MEVACOR [Suspect]
     Active Substance: LOVASTATIN
  10. FISH OIL [Concomitant]
     Active Substance: FISH OIL
  11. PEPCID [Concomitant]
     Active Substance: FAMOTIDINE

REACTIONS (8)
  - Bone pain [None]
  - Gait disturbance [None]
  - Migraine [None]
  - Unevaluable event [None]
  - Pain [None]
  - Impaired healing [None]
  - Paraesthesia [None]
  - Pain in extremity [None]
